FAERS Safety Report 6508152-4 (Version None)
Quarter: 2009Q4

REPORT INFORMATION
  Report Type: 
  Country: None (occurrence: None)
  Receive Date: 20091221
  Receipt Date: 20091211
  Transmission Date: 20100525
  Serious: Yes (Other)
  Sender: FDA-Public Use
  Company Number: PHHY2009JP55291

PATIENT
  Sex: Male
  Weight: 92 kg

DRUGS (4)
  1. NEORAL [Suspect]
     Indication: DERMATITIS ATOPIC
     Dosage: 200 MG/DAY
     Route: 048
     Dates: start: 20090323, end: 20090608
  2. MYSER [Concomitant]
     Indication: DERMATITIS ATOPIC
     Dosage: 0.83 MG, UNK
     Dates: start: 20071212
  3. CLARITIN [Concomitant]
     Indication: DERMATITIS ATOPIC
     Dosage: 10 MG, UNK
     Route: 048
     Dates: start: 20071212
  4. RISPERDAL [Concomitant]
     Indication: DEPRESSION

REACTIONS (1)
  - PANCYTOPENIA [None]
